FAERS Safety Report 25275154 (Version 1)
Quarter: 2025Q2

REPORT INFORMATION
  Report Type: Spontaneous
  Country: US (occurrence: US)
  Receive Date: 20250506
  Receipt Date: 20250506
  Transmission Date: 20250716
  Serious: No
  Sender: KYOWA
  Company Number: US-KYOWAKIRIN-2025KK007994

PATIENT

DRUGS (3)
  1. CRYSVITA [Suspect]
     Active Substance: BUROSUMAB-TWZA
     Indication: Hereditary hypophosphataemic rickets
     Route: 058
  2. SODIUM PHOSPHATE [Suspect]
     Active Substance: SODIUM PHOSPHATE
     Indication: Hereditary hypophosphataemic rickets
     Route: 065
  3. VITAMIN D NOS [Suspect]
     Active Substance: CHOLECALCIFEROL\ERGOCALCIFEROL
     Indication: Hereditary hypophosphataemic rickets
     Route: 065

REACTIONS (5)
  - Blood phosphorus decreased [Unknown]
  - Diarrhoea [Unknown]
  - Adverse drug reaction [Unknown]
  - Off label use [Unknown]
  - Contraindicated product administered [Unknown]
